FAERS Safety Report 9941701 (Version 1)
Quarter: 2014Q1

REPORT INFORMATION
  Report Type: Spontaneous
  Country: US (occurrence: US)
  Receive Date: 20140303
  Receipt Date: 20140303
  Transmission Date: 20141002
  Serious: No
  Sender: FDA-Public Use
  Company Number: US-ABBVIE-13P-163-1038503-00

PATIENT
  Age: 63 Year
  Sex: Female
  Weight: 72.64 kg

DRUGS (11)
  1. HUMIRA [Suspect]
     Indication: RHEUMATOID ARTHRITIS
     Route: 058
     Dates: start: 201210
  2. HUMIRA [Suspect]
     Indication: PSORIATIC ARTHROPATHY
  3. BENICAR [Concomitant]
     Indication: BLOOD PRESSURE
  4. DILTIAZEM [Concomitant]
     Indication: BLOOD PRESSURE
  5. METFORMIN [Concomitant]
     Indication: DIABETES MELLITUS
  6. LYRICA [Concomitant]
     Indication: SPINAL OSTEOARTHRITIS
  7. RANITIDINE [Concomitant]
     Indication: GASTRIC DISORDER
  8. SIMVASTATIN [Concomitant]
     Indication: BLOOD CHOLESTEROL
  9. ZIRTEC [Concomitant]
     Indication: HYPERSENSITIVITY
  10. ALLERGY SHOTS [Concomitant]
     Indication: HYPERSENSITIVITY
  11. CLONAZEPAM [Concomitant]
     Indication: ANXIETY

REACTIONS (5)
  - Medication error [Not Recovered/Not Resolved]
  - Inappropriate schedule of drug administration [Not Recovered/Not Resolved]
  - Drug ineffective [Not Recovered/Not Resolved]
  - Psoriasis [Not Recovered/Not Resolved]
  - Thirst [Not Recovered/Not Resolved]
